FAERS Safety Report 8278262-2 (Version None)
Quarter: 2012Q2

REPORT INFORMATION
  Report Type: 
  Country: None (occurrence: None)
  Receive Date: 20120412
  Receipt Date: 20120208
  Transmission Date: 20120825
  Serious: No
  Sender: FDA-Public Use
  Company Number: US-ASTRAZENECA-2012SE08936

PATIENT
  Age: 44 Year
  Sex: Male
  Weight: 85.7 kg

DRUGS (3)
  1. CHOLESTEROL MEDICATION [Concomitant]
  2. DAQUEL [Concomitant]
     Indication: NASOPHARYNGITIS
  3. NEXIUM [Suspect]
     Indication: FOOD INTOLERANCE
     Route: 048

REACTIONS (4)
  - OFF LABEL USE [None]
  - CHEST PAIN [None]
  - SLEEP DISORDER [None]
  - FOOD INTOLERANCE [None]
